FAERS Safety Report 8849215 (Version 1)
Quarter: 2012Q4

REPORT INFORMATION
  Report Type: 
  Country: US (occurrence: US)
  Receive Date: 20121019
  Receipt Date: 20121019
  Transmission Date: 20130627
  Serious: Yes (Other)
  Sender: FDA-Public Use
  Company Number: US-ELI_LILLY_AND_COMPANY-US201210003198

PATIENT
  Age: 68 Year
  Sex: Female

DRUGS (3)
  1. ZYPREXA [Suspect]
     Dosage: 7.5 mg, UNK
  2. LITHIUM [Concomitant]
  3. ADDERALL [Concomitant]

REACTIONS (1)
  - Breast cancer [Unknown]
